FAERS Safety Report 23339173 (Version 1)
Quarter: 2023Q4

REPORT INFORMATION
  Report Type: Spontaneous
  Country: DE (occurrence: DE)
  Receive Date: 20231226
  Receipt Date: 20231226
  Transmission Date: 20240109
  Serious: Yes (Other)
  Sender: FDA-Public Use
  Company Number: DE-ABBVIE-5556470

PATIENT
  Sex: Male

DRUGS (1)
  1. RINVOQ [Suspect]
     Active Substance: UPADACITINIB
     Indication: Product used for unknown indication
     Route: 048

REACTIONS (6)
  - Basal cell carcinoma [Unknown]
  - Gamma-glutamyltransferase increased [Unknown]
  - Erythema [Unknown]
  - Red blood cell count decreased [Unknown]
  - Acne [Unknown]
  - Papule [Unknown]
